FAERS Safety Report 19027503 (Version 1)
Quarter: 2021Q1

REPORT INFORMATION
  Report Type: Spontaneous
  Country: US (occurrence: US)
  Receive Date: 20210319
  Receipt Date: 20210319
  Transmission Date: 20210420
  Serious: No
  Sender: FDA-Public Use
  Company Number: US-ASTRAZENECA-2021A135621

PATIENT
  Sex: Female
  Weight: 78.9 kg

DRUGS (3)
  1. FARXIGA [Suspect]
     Active Substance: DAPAGLIFLOZIN PROPANEDIOL
     Indication: CHRONIC KIDNEY DISEASE
     Route: 048
     Dates: start: 20210306, end: 20210309
  2. FARXIGA [Suspect]
     Active Substance: DAPAGLIFLOZIN PROPANEDIOL
     Indication: DIABETES MELLITUS
     Route: 048
     Dates: start: 20210306, end: 20210309
  3. FARXIGA [Suspect]
     Active Substance: DAPAGLIFLOZIN PROPANEDIOL
     Indication: PROTEINURIA
     Route: 048
     Dates: start: 20210306, end: 20210309

REACTIONS (3)
  - Nausea [Unknown]
  - Pruritus [Unknown]
  - Burning sensation [Unknown]
